FAERS Safety Report 8553377-X (Version None)
Quarter: 2012Q3

REPORT INFORMATION
  Report Type: 
  Country: None (occurrence: None)
  Receive Date: 20120725
  Receipt Date: 20120725
  Transmission Date: 20120928
  Serious: No
  Sender: FDA-Public Use
  Company Number: None

PATIENT
  Age: 54 Year
  Sex: Female
  Weight: 89.5 kg

DRUGS (13)
  1. CLOZAPINE [Concomitant]
  2. DOCUSATE SODIUM [Concomitant]
  3. CALCIUM CARBONATE-CHOLECALCIFEROL [Concomitant]
  4. ZOFRAN [Suspect]
     Indication: NAUSEA
     Dosage: 4 MG 2 DOSES IV BOLUS 2 DOSES
     Route: 040
     Dates: start: 20120718, end: 20120718
  5. ASPIRIN [Concomitant]
  6. NATEGLINIDE [Concomitant]
  7. ACETAMINOPHEN [Concomitant]
  8. ATORVASTATIN [Concomitant]
  9. BISACODYL [Concomitant]
  10. GLIMEPIRIDE [Concomitant]
  11. OMEPRAZOLE [Concomitant]
  12. FUROSEMIDE [Concomitant]
  13. METFORMIN HYDROCHLORIDE [Concomitant]

REACTIONS (2)
  - ELECTROCARDIOGRAM QT PROLONGED [None]
  - BLOOD POTASSIUM DECREASED [None]
